FAERS Safety Report 14763139 (Version 1)
Quarter: 2018Q2

REPORT INFORMATION
  Report Type: Spontaneous
  Country: GB (occurrence: GB)
  Receive Date: 20180416
  Receipt Date: 20180416
  Transmission Date: 20180711
  Serious: Yes (Life-Threatening, Hospitalization, Disabling)
  Sender: FDA-Public Use
  Company Number: GB-ASTRAZENECA-2018SE45649

PATIENT
  Age: 69 Year
  Sex: Male
  Weight: 68 kg

DRUGS (8)
  1. OMEPRAZOLE. [Concomitant]
     Active Substance: OMEPRAZOLE
  2. PARACETAMOL [Concomitant]
     Active Substance: ACETAMINOPHEN
  3. NUROFEN [Concomitant]
     Active Substance: IBUPROFEN
  4. MST CONTINUS [Concomitant]
     Active Substance: MORPHINE SULFATE
  5. PROCHLORPERAZINE. [Concomitant]
     Active Substance: PROCHLORPERAZINE
  6. DEXAMETHASONE. [Concomitant]
     Active Substance: DEXAMETHASONE
  7. TAGRISSO [Suspect]
     Active Substance: OSIMERTINIB
     Indication: NON-SMALL CELL LUNG CANCER
     Route: 048
     Dates: start: 20180130, end: 20180212
  8. MORPHINE [Concomitant]
     Active Substance: MORPHINE

REACTIONS (1)
  - Renal failure [Recovered/Resolved]

NARRATIVE: CASE EVENT DATE: 20180212
